FAERS Safety Report 5723192-0 (Version None)
Quarter: 2008Q2

REPORT INFORMATION
  Report Type: 
  Country: None (occurrence: None)
  Receive Date: 20080425
  Receipt Date: 20080422
  Transmission Date: 20081010
  Serious: Yes (Death, Life-Threatening, Hospitalization)
  Sender: FDA-Public Use
  Company Number: 2008SP001728

PATIENT
  Age: 67 Year
  Sex: Female
  Weight: 52 kg

DRUGS (3)
  1. TEMOZOLOMIDE [Suspect]
     Indication: COLORECTAL CANCER
     Dosage: 215 MG; QD
     Dates: start: 20071227, end: 20080118
  2. TEMOZOLOMIDE [Suspect]
  3. LOMOTIL [Concomitant]

REACTIONS (17)
  - ABDOMINAL DISTENSION [None]
  - ABDOMINAL PAIN [None]
  - ASTHENIA [None]
  - BLOOD BILIRUBIN INCREASED [None]
  - FULL BLOOD COUNT DECREASED [None]
  - GASTROINTESTINAL HYPOMOTILITY [None]
  - HEPATIC ENCEPHALOPATHY [None]
  - HYPOTENSION [None]
  - LEUKOPENIA [None]
  - MIOSIS [None]
  - NAUSEA [None]
  - PYREXIA [None]
  - RASH [None]
  - RESPIRATORY ACIDOSIS [None]
  - SYNCOPE [None]
  - THROMBOCYTOPENIA [None]
  - UPPER GASTROINTESTINAL HAEMORRHAGE [None]
